FAERS Safety Report 7284230-X (Version None)
Quarter: 2011Q1

REPORT INFORMATION
  Report Type: 
  Country: None (occurrence: None)
  Receive Date: 20110209
  Receipt Date: 20110204
  Transmission Date: 20110831
  Serious: Yes (Other)
  Sender: FDA-Public Use
  Company Number: ES-ROXANE LABORATORIES, INC.-2011-RO-00140RO

PATIENT
  Age: 53 Year
  Sex: Female

DRUGS (2)
  1. ZOLPIDEM [Suspect]
     Indication: INSOMNIA
     Dosage: 10 MG
  2. VENLAFAXINE [Concomitant]
     Indication: DEPRESSION
     Dosage: 150 MG

REACTIONS (2)
  - WEIGHT INCREASED [None]
  - SLEEP-RELATED EATING DISORDER [None]
